FAERS Safety Report 23932899 (Version 1)
Quarter: 2024Q2

REPORT INFORMATION
  Report Type: Spontaneous
  Country: US (occurrence: None)
  Receive Date: 20240602
  Receipt Date: 20240602
  Transmission Date: 20240716
  Serious: Yes (Other)
  Sender: FDA-Public Use
  Company Number: None

PATIENT
  Age: 37 Year
  Sex: Female
  Weight: 59.85 kg

DRUGS (5)
  1. CIMZIA [Suspect]
     Active Substance: CERTOLIZUMAB PEGOL
     Indication: Psoriasis
     Dosage: OTHER QUANTITY : 2 INJECTION(S);?OTHER FREQUENCY : EVERY 2 WEEKS;?
     Route: 058
     Dates: start: 20240601, end: 20240602
  2. LABETALOL [Concomitant]
     Active Substance: LABETALOL\LABETALOL HYDROCHLORIDE
  3. SUNFLOWER [Concomitant]
     Active Substance: HELIANTHUS ANNUUS POLLEN
  4. LECITHIN [Concomitant]
     Active Substance: LECITHIN
  5. VITAMINS [Concomitant]
     Active Substance: VITAMINS

REACTIONS (3)
  - Pruritus [None]
  - Urticaria [None]
  - Paraesthesia [None]

NARRATIVE: CASE EVENT DATE: 20240602
